FAERS Safety Report 24456739 (Version 8)
Quarter: 2024Q4

REPORT INFORMATION
  Report Type: Spontaneous
  Country: US (occurrence: US)
  Receive Date: 20241017
  Receipt Date: 20241121
  Transmission Date: 20250115
  Serious: Yes (Other)
  Sender: PFIZER
  Company Number: US-PFIZER INC-PV202400132413

PATIENT
  Age: 88 Year
  Sex: Male
  Weight: 69.4 kg

DRUGS (18)
  1. VYNDAMAX [Suspect]
     Active Substance: TAFAMIDIS
     Indication: Cardiac amyloidosis
     Dosage: ONE 61 MG TAFAMIDIS CAPSULE ORALLY ONCE DAILY
     Route: 048
     Dates: start: 20231112
  2. VYNDAMAX [Suspect]
     Active Substance: TAFAMIDIS
     Dosage: 61 MG, DAILY
     Route: 048
     Dates: start: 20231213
  3. ELIQUIS [Suspect]
     Active Substance: APIXABAN
     Indication: Atrial fibrillation
     Dosage: TAKE 1 TABLET BY MOUTH TWICE DAILY
     Route: 048
     Dates: start: 202303
  4. INSPRA [Concomitant]
     Active Substance: EPLERENONE
     Indication: Cardiac failure chronic
     Dosage: 12.5 MG, DAILY (TAKE 1/2 TABLET DAILY)
     Route: 048
  5. INSPRA [Concomitant]
     Active Substance: EPLERENONE
     Dosage: 0.5 MG, DAILY
  6. TYLENOL [Concomitant]
     Active Substance: ACETAMINOPHEN
     Indication: Pain
     Dosage: EVERY 8 HOURS AS NEEDED
     Route: 048
  7. VITAMIN C [Concomitant]
     Active Substance: ASCORBIC ACID
     Dosage: 500 MG, 2X/DAY
     Route: 048
  8. ASTELIN [Concomitant]
     Active Substance: AZELASTINE HYDROCHLORIDE
     Indication: Rhinitis
     Dosage: PLACE 2 SPRAYS INFO EACH NOSTRIL 2 (TWO) TIMES DAILY AS NEEDED
  9. CHOLECALCIFEROL [Concomitant]
     Active Substance: CHOLECALCIFEROL
     Dosage: 2000 UNITS BY MOUTH EVERY MORNING
     Route: 048
  10. EFUDEX [Concomitant]
     Active Substance: FLUOROURACIL
     Indication: Actinic keratosis
     Dosage: UNK, 2X/DAY
  11. LASIX [Concomitant]
     Active Substance: FUROSEMIDE
     Dosage: 20 MG, 2X/DAY
     Route: 048
  12. ZOCOR [Concomitant]
     Active Substance: SIMVASTATIN
     Dosage: TAKE 1 TABLET BY MOUTH AT BEDTIME
     Route: 048
  13. FISH OIL [Concomitant]
     Active Substance: FISH OIL
     Dosage: TAKE 1 CAPSULE BY MOUTH DAILY
     Route: 048
  14. PRILOSEC [Concomitant]
     Active Substance: OMEPRAZOLE MAGNESIUM
     Dosage: TAKE 1 CAPSULE (40MG) TOTAL  BY MOUTH DAILY
     Route: 048
  15. ONDANSETRON [Concomitant]
     Active Substance: ONDANSETRON
     Dosage: TAKE BY MOUTH DISSOLVE 2 TABS IN MOUTH
     Route: 048
  16. TOPROL XL [Concomitant]
     Active Substance: METOPROLOL SUCCINATE
     Dosage: 25 MG, DAILY
  17. EPLERENONE [Concomitant]
     Active Substance: EPLERENONE
     Dosage: 0.5 MG, DAILY
  18. EPLERENONE [Concomitant]
     Active Substance: EPLERENONE
     Dosage: TAKE 1/2 TABLET BY MOUTH DAILY
     Route: 048

REACTIONS (19)
  - Cardiac failure chronic [Unknown]
  - Atrial fibrillation [Unknown]
  - Pneumonia [Unknown]
  - Carpal tunnel syndrome [Unknown]
  - Spinal pain [Unknown]
  - Varicose vein [Unknown]
  - Haemorrhagic diathesis [Unknown]
  - Increased tendency to bruise [Unknown]
  - Sputum increased [Unknown]
  - Weight decreased [Unknown]
  - Somnolence [Unknown]
  - Fatigue [Unknown]
  - Dizziness [Unknown]
  - Snoring [Unknown]
  - High density lipoprotein decreased [Unknown]
  - Light chain analysis increased [Unknown]
  - Brain natriuretic peptide increased [Unknown]
  - Brain natriuretic peptide increased [Unknown]
  - Blood urea increased [Unknown]

NARRATIVE: CASE EVENT DATE: 20231112
